FAERS Safety Report 21348873 (Version 4)
Quarter: 2022Q4

REPORT INFORMATION
  Report Type: Spontaneous
  Country: IN (occurrence: IN)
  Receive Date: 20220919
  Receipt Date: 20221102
  Transmission Date: 20230113
  Serious: Yes (Other)
  Sender: FDA-Public Use
  Company Number: IN-CIPLA LTD.-2022IN05439

PATIENT
  Sex: Male

DRUGS (7)
  1. BUDESONIDE [Suspect]
     Active Substance: BUDESONIDE
     Indication: Asthma
     Dosage: 200 MICROGRAM, BID (2 PUFFS BID)
     Route: 048
     Dates: start: 201702
  2. BUDESONIDE [Suspect]
     Active Substance: BUDESONIDE
     Dosage: 200 MICROGRAM, BID (2 PUFFS BID)
     Route: 048
     Dates: start: 2022, end: 202208
  3. ALBUTEROL [Suspect]
     Active Substance: ALBUTEROL
     Indication: Asthma
     Dosage: 200 MICROGRAM, QID ( 2PUFFS/ EVERY 6 HOURS)
     Route: 048
     Dates: start: 201702
  4. ALBUTEROL [Suspect]
     Active Substance: ALBUTEROL
     Dosage: 200 MICROGRAM, QID, ( 2PUFFS/ EVERY 6 HOURS)
     Route: 048
     Dates: start: 2022, end: 202208
  5. MOMETASONE FUROATE [Suspect]
     Active Substance: MOMETASONE FUROATE
     Indication: Asthma
     Dosage: UNK
     Route: 045
     Dates: start: 201702
  6. MOMETASONE FUROATE [Suspect]
     Active Substance: MOMETASONE FUROATE
     Dosage: UNK
     Route: 045
     Dates: start: 2022, end: 202208
  7. DEVICE [Suspect]
     Active Substance: DEVICE
     Indication: Asthma
     Dosage: UNK
     Route: 065
     Dates: start: 202208

REACTIONS (4)
  - Asthma [Recovering/Resolving]
  - Drug ineffective [Recovering/Resolving]
  - Suspected counterfeit product [Unknown]
  - Allergic bronchitis [Recovering/Resolving]

NARRATIVE: CASE EVENT DATE: 20220101
